FAERS Safety Report 7754078-8 (Version None)
Quarter: 2011Q3

REPORT INFORMATION
  Report Type: 
  Country: None (occurrence: None)
  Receive Date: 20110915
  Receipt Date: 20110902
  Transmission Date: 20111222
  Serious: No
  Sender: FDA-Public Use
  Company Number: US-B.I. PHARMACEUTICALS,INC./RIDGEFIELD-2011-BP-21576BP

PATIENT
  Age: 79 Year
  Sex: Female

DRUGS (7)
  1. PRADAXA [Suspect]
     Indication: ATRIAL FIBRILLATION
     Dosage: 300 MG
     Route: 048
     Dates: start: 20110501
  2. BUMEX [Concomitant]
     Indication: HYPERTENSION
  3. VIT OSCAL [Concomitant]
     Indication: SUPPLEMENTATION THERAPY
  4. LORTAB [Concomitant]
     Indication: PAIN
  5. ADVAIR DISKUS 100/50 [Concomitant]
     Indication: DYSPNOEA
  6. POTASSIUM [Concomitant]
     Indication: SUPPLEMENTATION THERAPY
  7. ASPIRIN [Concomitant]
     Indication: CARDIAC DISORDER

REACTIONS (4)
  - OEDEMA PERIPHERAL [None]
  - JOINT SWELLING [None]
  - DYSPNOEA [None]
  - DYSPEPSIA [None]
